FAERS Safety Report 5538435-6 (Version None)
Quarter: 2007Q4

REPORT INFORMATION
  Report Type: 
  Country: None (occurrence: None)
  Receive Date: 20071205
  Receipt Date: 20071121
  Transmission Date: 20080405
  Serious: Yes (Other)
  Sender: FDA-Public Use
  Company Number: 2007EN000117

PATIENT
  Age: 24 Month
  Sex: Female

DRUGS (1)
  1. ABELCET (AMPHOTERICIN B LIPID COMPLEX) [Suspect]
     Indication: LUNG DISORDER
     Dosage: IV
     Route: 042

REACTIONS (2)
  - HYPERTHERMIA [None]
  - HYPOTHERMIA [None]
